FAERS Safety Report 8020514-5 (Version None)
Quarter: 2012Q1

REPORT INFORMATION
  Report Type: 
  Country: None (occurrence: None)
  Receive Date: 20120103
  Receipt Date: 20111227
  Transmission Date: 20120608
  Serious: Yes (Hospitalization)
  Sender: FDA-Public Use
  Company Number: JP-ROCHE-755596

PATIENT
  Age: 35 Year
  Sex: Male

DRUGS (17)
  1. TENOFOVIR [Suspect]
     Indication: HIV INFECTION
     Route: 048
     Dates: start: 20091022, end: 20091202
  2. METHYCOBAL [Concomitant]
     Dates: start: 20101214, end: 20110331
  3. RIFABUTIN [Suspect]
     Indication: MYCOBACTERIUM AVIUM COMPLEX INFECTION
     Route: 048
     Dates: start: 20090120, end: 20091211
  4. PENTAMIDINE ISETHIONATE [Concomitant]
     Route: 055
     Dates: start: 20101012, end: 20110331
  5. VALCYTE [Suspect]
     Route: 048
     Dates: start: 20100519, end: 20100630
  6. DARUNAVIR [Suspect]
     Indication: HIV INFECTION
     Route: 048
     Dates: start: 20091203, end: 20110331
  7. LAMIVUDINE [Suspect]
     Indication: HIV INFECTION
     Route: 048
     Dates: start: 20091211, end: 20100920
  8. INTELENCE [Concomitant]
     Route: 048
     Dates: start: 20100921, end: 20110331
  9. VALCYTE [Suspect]
     Route: 048
     Dates: start: 20100701, end: 20110120
  10. ISENTRESS [Concomitant]
     Route: 048
     Dates: start: 20100921, end: 20110331
  11. VALCYTE [Suspect]
     Indication: CYTOMEGALOVIRUS INFECTION
     Dosage: INITIAL THERAPY.
     Route: 048
     Dates: start: 20100106, end: 20100127
  12. RITONAVIR [Suspect]
     Indication: HIV INFECTION
     Route: 048
     Dates: start: 20091022, end: 20110331
  13. ATAZANAVIR SULFATE [Suspect]
     Indication: HIV INFECTION
     Route: 048
     Dates: start: 20091022, end: 20091202
  14. EMTRICITABINE [Suspect]
     Indication: HIV INFECTION
     Route: 048
     Dates: start: 20091022, end: 20091202
  15. CLINDAMYCIN PHOSPHATE [Concomitant]
     Route: 051
     Dates: start: 20101214, end: 20110331
  16. VALCYTE [Suspect]
     Dosage: MAINTENANCE THERAPY.
     Route: 048
     Dates: start: 20100216, end: 20100324
  17. CHLORHEXIDINE GLUCONATE [Concomitant]
     Dates: start: 20101214, end: 20110331

REACTIONS (5)
  - MYCOBACTERIUM AVIUM COMPLEX INFECTION [None]
  - RENAL IMPAIRMENT [None]
  - CYTOMEGALOVIRUS CHORIORETINITIS [None]
  - HYPERURICAEMIA [None]
  - HYPOAESTHESIA [None]
